FAERS Safety Report 8559203 (Version 3)
Quarter: 2012Q4

REPORT INFORMATION
  Report Type: 
  Country: US (occurrence: US)
  Receive Date: 20120511
  Receipt Date: 20121024
  Transmission Date: 20130627
  Serious: Yes (Other)
  Sender: FDA-Public Use
  Company Number: US-ELI_LILLY_AND_COMPANY-US201111003404

PATIENT
  Age: 85 Year
  Sex: Female

DRUGS (13)
  1. FORTEO [Suspect]
     Indication: OSTEOPOROSIS
     Dosage: 20 ug, qd
     Route: 058
     Dates: start: 201108
  2. FORTEO [Suspect]
     Dosage: 20 ug, qd
     Route: 058
  3. FORTEO [Suspect]
     Dosage: 20 ug, qd
     Route: 058
  4. FORTEO [Suspect]
     Dosage: 20 ug, qd
     Route: 058
  5. FORTEO [Suspect]
     Dosage: 20 ug, qd
     Route: 058
  6. FORTEO [Suspect]
     Dosage: 20 ug, qd
  7. FORTEO [Suspect]
     Dosage: 20 ug, qd
     Route: 058
     Dates: start: 201108
  8. CARDIZEM                           /00489701/ [Concomitant]
     Dosage: 160 mg, qd
  9. ATENOLOL [Concomitant]
     Dosage: 50 mg, qd
  10. CALCIUM [Concomitant]
     Dosage: UNK, qd
  11. VITAMIN D NOS [Concomitant]
     Dosage: UNK, qd
  12. TYLENOL EXTRA STRENGTH [Concomitant]
     Dosage: UNK, qd
  13. ATIVAN [Concomitant]

REACTIONS (22)
  - Transient ischaemic attack [Unknown]
  - Hypoacusis [Unknown]
  - Arthritis [Not Recovered/Not Resolved]
  - Joint swelling [Not Recovered/Not Resolved]
  - Oedema peripheral [Not Recovered/Not Resolved]
  - Musculoskeletal discomfort [Not Recovered/Not Resolved]
  - Hypokinesia [Unknown]
  - Injection site pruritus [Unknown]
  - Skin disorder [Unknown]
  - Pain [Unknown]
  - Arthralgia [Not Recovered/Not Resolved]
  - Dyspepsia [Not Recovered/Not Resolved]
  - Activities of daily living impaired [Not Recovered/Not Resolved]
  - Diarrhoea [Recovered/Resolved]
  - Abdominal discomfort [Recovered/Resolved]
  - Vomiting [Recovered/Resolved]
  - Abdominal discomfort [Unknown]
  - Kidney infection [Recovered/Resolved]
  - Feeling abnormal [Not Recovered/Not Resolved]
  - Kidney infection [Not Recovered/Not Resolved]
  - Bone pain [Unknown]
  - Fatigue [Unknown]
